FAERS Safety Report 10191489 (Version 4)
Quarter: 2014Q3

REPORT INFORMATION
  Report Type: Report from Study
  Country: CA (occurrence: CA)
  Receive Date: 20140523
  Receipt Date: 20140823
  Transmission Date: 20150326
  Serious: Yes (Other)
  Sender: FDA-Public Use
  Company Number: PHHY2014CA032190

PATIENT
  Sex: Male

DRUGS (3)
  1. GLEEVEC [Suspect]
     Active Substance: IMATINIB MESYLATE
     Indication: GASTROINTESTINAL STROMAL TUMOUR
     Dosage: 400 MG, QD
     Route: 048
     Dates: start: 200911, end: 20130402
  2. GLEEVEC [Suspect]
     Active Substance: IMATINIB MESYLATE
     Dosage: 400 MG, QD
     Route: 048
     Dates: start: 20140410
  3. LOSEC                                   /CAN/ [Concomitant]
     Dosage: UNK UKN, UNK

REACTIONS (12)
  - Weight increased [Unknown]
  - Abdominal pain upper [Unknown]
  - Stress [Unknown]
  - Weight decreased [Unknown]
  - Asthenia [Recovering/Resolving]
  - Fatigue [Unknown]
  - Blood cholesterol increased [Unknown]
  - Blood glucose increased [Recovering/Resolving]
  - Diabetes mellitus [Unknown]
  - Gastrointestinal stromal tumour [Unknown]
  - Pain [Unknown]
  - Malignant neoplasm progression [Unknown]
